FAERS Safety Report 21837754 (Version 1)
Quarter: 2023Q1

REPORT INFORMATION
  Report Type: Report from Study
  Country: US (occurrence: US)
  Receive Date: 20230109
  Receipt Date: 20230109
  Transmission Date: 20230417
  Serious: No
  Sender: FDA-Public Use
  Company Number: US-ABBVIE-4259830

PATIENT
  Sex: Male

DRUGS (1)
  1. CREON [Suspect]
     Active Substance: PANCRELIPASE AMYLASE\PANCRELIPASE LIPASE\PANCRELIPASE PROTEASE
     Indication: Product used for unknown indication
     Dosage: 19 PILLS PER DAY WITH MEALS AND SNACKS
     Route: 048

REACTIONS (4)
  - Product taste abnormal [Unknown]
  - Loss of personal independence in daily activities [Unknown]
  - Impaired quality of life [Unknown]
  - Product odour abnormal [Unknown]
